FAERS Safety Report 17807845 (Version 1)
Quarter: 2020Q2

REPORT INFORMATION
  Report Type: Report from Study
  Country: US (occurrence: US)
  Receive Date: 20200520
  Receipt Date: 20200520
  Transmission Date: 20200714
  Serious: Yes (Hospitalization, Other)
  Sender: FDA-Public Use
  Company Number: US-AMGEN-USACT2020078458

PATIENT
  Age: 36 Year
  Sex: Female
  Weight: 52 kg

DRUGS (3)
  1. BLINATUMOMAB [Suspect]
     Active Substance: BLINATUMOMAB
     Indication: B PRECURSOR TYPE ACUTE LEUKAEMIA
     Dosage: 9 MICROGRAM, QD ON DAYS 1-7 AND THEN 28 MICROGRAM/DAY ON DAYS 8-28
     Route: 042
     Dates: start: 20191017, end: 20191217
  2. IPILIMUMAB [Suspect]
     Active Substance: IPILIMUMAB
     Indication: B PRECURSOR TYPE ACUTE LEUKAEMIA
     Dosage: 1 MILLIGRAM/KILOGRAM, 90 MINUTES ON DAY 11 AND THEN EVERY 6 WEEKS
     Route: 042
     Dates: start: 20191029, end: 20191029
  3. NIVOLUMAB [Suspect]
     Active Substance: NIVOLUMAB
     Indication: B PRECURSOR TYPE ACUTE LEUKAEMIA
     Dosage: 80 MILLIGRAM, OVER 60 MINUTES ON DAY 11 AND THEN EVERY TWO WEEKS
     Route: 042
     Dates: start: 20191029, end: 20191029

REACTIONS (5)
  - Pyrexia [Recovered/Resolved]
  - Pleuritic pain [Unknown]
  - Pneumonitis [Unknown]
  - Non-cardiac chest pain [Recovered/Resolved]
  - Febrile neutropenia [Unknown]

NARRATIVE: CASE EVENT DATE: 20191112
